FAERS Safety Report 5591277-8 (Version None)
Quarter: 2008Q1

REPORT INFORMATION
  Report Type: 
  Country: None (occurrence: None)
  Receive Date: 20080111
  Receipt Date: 20080103
  Transmission Date: 20080703
  Serious: Yes (Other)
  Sender: FDA-Public Use
  Company Number: 2008-00016

PATIENT
  Age: 49 Year
  Sex: Male

DRUGS (1)
  1. LORATADINE [Suspect]
     Indication: HYPERSENSITIVITY
     Dosage: 10 MG, DAILY X 1 YR, ORAL
     Route: 048

REACTIONS (2)
  - AUTOIMMUNE HEPATITIS [None]
  - NEUROPATHY PERIPHERAL [None]
